FAERS Safety Report 5406786-1 (Version None)
Quarter: 2007Q3

REPORT INFORMATION
  Report Type: 
  Country: None (occurrence: None)
  Receive Date: 20070802
  Receipt Date: 20070725
  Transmission Date: 20080115
  Serious: Yes (Death, Other)
  Sender: FDA-Public Use
  Company Number: 083-20785-07071478

PATIENT

DRUGS (5)
  1. THALOMID (THALIMDOMIDE) (CAPSULES) [Suspect]
     Indication: MULTIPLE MYELOMA
     Dosage: VARIES PER STUDY, ORAL
     Route: 048
  2. DEXAMETHASONE TAB [Suspect]
     Indication: MULTIPLE MYELOMA
     Dosage: 20 MG, -6 TO -3
  3. MELPHALAN (MELPHALAN) [Suspect]
     Indication: MULTIPLE MYELOMA
     Dosage: 50 MG, INTRAVENOUS : 100 MG/M2, INTRAVEOUS
     Route: 042
  4. PREDNISONE TAB [Suspect]
     Indication: MULTIPLE MYELOMA
  5. BORTEZOMIB (BORTEZOMIB) [Suspect]
     Indication: MULTIPLE MYELOMA
     Dosage: 1.3 MG/M2, DAYS 3-6

REACTIONS (6)
  - DEEP VEIN THROMBOSIS [None]
  - FEBRILE NEUTROPENIA [None]
  - HERPES ZOSTER [None]
  - NEUROPATHY PERIPHERAL [None]
  - PNEUMONIA [None]
  - THROMBOCYTOPENIA [None]
